FAERS Safety Report 25063904 (Version 1)
Quarter: 2025Q1

REPORT INFORMATION
  Report Type: Spontaneous
  Country: BR (occurrence: None)
  Receive Date: 20250311
  Receipt Date: 20250311
  Transmission Date: 20250409
  Serious: Yes (Death, Other)
  Sender: INCYTE
  Company Number: BR-INCYTE CORPORATION-2025IN002569

PATIENT

DRUGS (1)
  1. TAFASITAMAB [Suspect]
     Active Substance: TAFASITAMAB
     Indication: Diffuse large B-cell lymphoma

REACTIONS (3)
  - Drug ineffective [Unknown]
  - Disease progression [Not Recovered/Not Resolved]
  - Acute myeloid leukaemia [Fatal]
